FAERS Safety Report 10696896 (Version 3)
Quarter: 2015Q3

REPORT INFORMATION
  Report Type: Report from Study
  Country: BR (occurrence: BR)
  Receive Date: 20150108
  Receipt Date: 20150723
  Transmission Date: 20151125
  Serious: Yes (Other)
  Sender: FDA-Public Use
  Company Number: BR-ROCHE-1383455

PATIENT
  Age: 63 Year
  Sex: Female
  Weight: 96 kg

DRUGS (45)
  1. MABTHERA [Suspect]
     Active Substance: RITUXIMAB
     Route: 042
     Dates: start: 20130215
  2. ARAVA [Concomitant]
     Active Substance: LEFLUNOMIDE
  3. VIMOVO [Concomitant]
     Active Substance: ESOMEPRAZOLE MAGNESIUM\NAPROXEN
  4. MABTHERA [Suspect]
     Active Substance: RITUXIMAB
     Route: 042
     Dates: start: 20110606
  5. MABTHERA [Suspect]
     Active Substance: RITUXIMAB
     Route: 042
     Dates: start: 20110620
  6. MABTHERA [Suspect]
     Active Substance: RITUXIMAB
     Route: 042
     Dates: start: 20120625
  7. MABTHERA [Suspect]
     Active Substance: RITUXIMAB
     Route: 042
     Dates: end: 201405
  8. CLONAZEPAM. [Concomitant]
     Active Substance: CLONAZEPAM
  9. ETNA [Concomitant]
     Active Substance: UNSPECIFIED INGREDIENT
  10. RETINOL [Concomitant]
     Active Substance: RETINOL
  11. PHENERGAN [Concomitant]
     Active Substance: PROMETHAZINE HYDROCHLORIDE
  12. GLIFAGE [Concomitant]
     Active Substance: METFORMIN HYDROCHLORIDE
  13. HYDROCHLOROTHIAZIDE. [Concomitant]
     Active Substance: HYDROCHLOROTHIAZIDE
  14. MABTHERA [Suspect]
     Active Substance: RITUXIMAB
     Route: 042
     Dates: start: 20120109
  15. MABTHERA [Suspect]
     Active Substance: RITUXIMAB
     Route: 042
     Dates: start: 20130826
  16. TRAMADOL. [Concomitant]
     Active Substance: TRAMADOL
  17. MELOXICAM. [Concomitant]
     Active Substance: MELOXICAM
  18. MABTHERA [Suspect]
     Active Substance: RITUXIMAB
     Route: 042
     Dates: start: 20100615
  19. MABTHERA [Suspect]
     Active Substance: RITUXIMAB
     Route: 042
     Dates: start: 20130812
  20. MABTHERA [Suspect]
     Active Substance: RITUXIMAB
     Route: 042
     Dates: start: 20150215
  21. VELIJA [Suspect]
     Active Substance: DULOXETINE HYDROCHLORIDE
     Indication: PRODUCT USED FOR UNKNOWN INDICATION
     Route: 065
  22. GABAPENTINE [Concomitant]
     Active Substance: GABAPENTIN
  23. VERAPAMIL [Concomitant]
     Active Substance: VERAPAMIL HYDROCHLORIDE
  24. ATENOLOL. [Concomitant]
     Active Substance: ATENOLOL
  25. LIMBITROL [Concomitant]
     Active Substance: AMITRIPTYLINE\CHLORDIAZEPOXIDE
  26. GLIMEPIRIDE. [Concomitant]
     Active Substance: GLIMEPIRIDE
  27. PANTOPRAZOLE [Concomitant]
     Active Substance: PANTOPRAZOLE SODIUM
  28. SIMVASTATIN. [Concomitant]
     Active Substance: SIMVASTATIN
  29. METRONIDAZOLE. [Concomitant]
     Active Substance: METRONIDAZOLE
  30. EQUILID [Concomitant]
     Active Substance: SULPIRIDE
  31. PHENERGAN [Concomitant]
     Active Substance: PROMETHAZINE HYDROCHLORIDE
  32. MABTHERA [Suspect]
     Active Substance: RITUXIMAB
     Route: 042
     Dates: start: 20120123
  33. METHOTREXATE [Concomitant]
     Active Substance: METHOTREXATE
  34. REUQUINOL [Concomitant]
     Active Substance: HYDROXYCHLOROQUINE SULFATE
  35. MABTHERA [Suspect]
     Active Substance: RITUXIMAB
     Route: 042
     Dates: start: 20130201
  36. HYDROCHLOROTHIAZIDE. [Concomitant]
     Active Substance: HYDROCHLOROTHIAZIDE
  37. ALPRAZOLAM. [Concomitant]
     Active Substance: ALPRAZOLAM
  38. VENLAFAXINE [Concomitant]
     Active Substance: VENLAFAXINE HYDROCHLORIDE
  39. MABTHERA [Suspect]
     Active Substance: RITUXIMAB
     Indication: RHEUMATOID ARTHRITIS
     Dosage: 7 CYCLES
     Route: 042
     Dates: start: 20100601
  40. MABTHERA [Suspect]
     Active Substance: RITUXIMAB
     Route: 042
     Dates: start: 20120709
  41. MABTHERA [Suspect]
     Active Substance: RITUXIMAB
     Route: 042
     Dates: end: 20110215
  42. SPIRONOLACTONE. [Concomitant]
     Active Substance: SPIRONOLACTONE
  43. ALPRAZOLAM. [Concomitant]
     Active Substance: ALPRAZOLAM
  44. LABIRIN [Concomitant]
     Active Substance: BETAHISTINE
  45. VENLAFAXINE [Concomitant]
     Active Substance: VENLAFAXINE HYDROCHLORIDE

REACTIONS (16)
  - Deafness [Not Recovered/Not Resolved]
  - Decreased appetite [Not Recovered/Not Resolved]
  - Pain in extremity [Not Recovered/Not Resolved]
  - Irritable bowel syndrome [Unknown]
  - Abasia [Not Recovered/Not Resolved]
  - Panic disorder [Unknown]
  - Weight decreased [Not Recovered/Not Resolved]
  - Bedridden [Not Recovered/Not Resolved]
  - Cardiac disorder [Unknown]
  - Urinary tract infection [Unknown]
  - Depression [Unknown]
  - Arthralgia [Not Recovered/Not Resolved]
  - Diabetes mellitus [Unknown]
  - Hypertension [Unknown]
  - Viral infection [Unknown]
  - Swelling [Unknown]

NARRATIVE: CASE EVENT DATE: 201412
